FAERS Safety Report 6743136-2 (Version None)
Quarter: 2010Q2

REPORT INFORMATION
  Report Type: 
  Country: None (occurrence: None)
  Receive Date: 20100527
  Receipt Date: 20100520
  Transmission Date: 20101027
  Serious: Yes (Hospitalization)
  Sender: FDA-Public Use
  Company Number: PHHO2009US15374

PATIENT
  Sex: Male
  Weight: 96.145 kg

DRUGS (16)
  1. STI571/CGP57148B T35717+TAB [Suspect]
     Indication: RENAL CELL CARCINOMA
     Dosage: 400 MG
     Route: 048
     Dates: start: 20040909, end: 20050504
  2. STI571/CGP57148B T35717+TAB [Suspect]
     Dosage: 300 MG, QD
     Route: 048
     Dates: start: 20050505, end: 20050728
  3. STI571/CGP57148B T35717+TAB [Suspect]
     Dosage: 100 MG, QD
     Route: 048
     Dates: start: 20050805, end: 20050922
  4. AVASTIN [Suspect]
     Indication: RENAL CELL CARCINOMA
     Dosage: UNK
     Dates: start: 20040909, end: 20050629
  5. AVASTIN [Suspect]
     Dosage: UNK
     Dates: start: 20050630, end: 20080830
  6. AVASTIN [Suspect]
     Dosage: UNK
     Dates: start: 20080831, end: 20090826
  7. AVASTIN [Suspect]
     Dosage: UNK
     Dates: start: 20090827, end: 20091208
  8. TARCEVA [Suspect]
     Indication: RENAL CELL CARCINOMA
     Dosage: UNK
     Dates: start: 20040909, end: 20050201
  9. TARCEVA [Suspect]
     Dosage: UNK
     Dates: start: 20050209, end: 20071024
  10. TARCEVA [Suspect]
     Dosage: UNK
     Dates: start: 20071025, end: 20091208
  11. RYTHMOL [Concomitant]
     Dosage: UNK
  12. LOVASTATIN [Concomitant]
  13. PREVACID [Concomitant]
  14. VALIUM [Concomitant]
  15. SOMA [Concomitant]
  16. ASPIRIN [Concomitant]

REACTIONS (7)
  - CEREBRAL ISCHAEMIA [None]
  - CEREBROVASCULAR ACCIDENT [None]
  - FACIAL PALSY [None]
  - GAIT DISTURBANCE [None]
  - HEMIPARESIS [None]
  - HYPOAESTHESIA [None]
  - MUSCULAR WEAKNESS [None]
